FAERS Safety Report 19551784 (Version 2)
Quarter: 2021Q3

REPORT INFORMATION
  Report Type: Report from Study
  Country: IE (occurrence: IE)
  Receive Date: 20210715
  Receipt Date: 20210908
  Transmission Date: 20211014
  Serious: Yes (Death, Hospitalization)
  Sender: FDA-Public Use
  Company Number: IE-EMD SERONO-9181017

PATIENT
  Age: 15 Year
  Sex: Male

DRUGS (5)
  1. SAIZEN [Suspect]
     Active Substance: SOMATROPIN
     Indication: GROWTH HORMONE DEFICIENCY
     Dosage: LIQUID CARTRIDGE
     Route: 058
     Dates: start: 20130618, end: 20160214
  2. SAIZEN [Suspect]
     Active Substance: SOMATROPIN
     Dosage: LIQUID CARTRIDGE
     Route: 058
     Dates: start: 20160215, end: 2020
  3. LEVOTHYROXINE. [Concomitant]
     Active Substance: LEVOTHYROXINE
     Indication: PRODUCT USED FOR UNKNOWN INDICATION
     Route: 048
  4. SAIZEN [Suspect]
     Active Substance: SOMATROPIN
     Dosage: LIQUID CARTRIDGE
     Route: 058
     Dates: start: 2020, end: 202005
  5. DESMOPRESSIN [Concomitant]
     Active Substance: DESMOPRESSIN
     Indication: VOMITING

REACTIONS (3)
  - Death [Fatal]
  - T-cell lymphoma [Unknown]
  - Spinal cord compression [Not Recovered/Not Resolved]

NARRATIVE: CASE EVENT DATE: 202005
